FAERS Safety Report 19417286 (Version 1)
Quarter: 2021Q2

REPORT INFORMATION
  Report Type: Spontaneous
  Country: JP (occurrence: JP)
  Receive Date: 20210614
  Receipt Date: 20210614
  Transmission Date: 20210717
  Serious: Yes (Other)
  Sender: FDA-Public Use
  Company Number: JP-TAKEDA-2021TJP036904

PATIENT

DRUGS (1)
  1. TRINTELLIX [Suspect]
     Active Substance: VORTIOXETINE HYDROBROMIDE
     Indication: DEPRESSION
     Dosage: 10 MILLIGRAM
     Route: 048

REACTIONS (7)
  - Urticaria [Unknown]
  - Underdose [Unknown]
  - Nausea [Unknown]
  - Drug ineffective [Unknown]
  - Adverse event [Unknown]
  - Glaucoma [Unknown]
  - Decreased appetite [Unknown]
